FAERS Safety Report 8097761-X (Version None)
Quarter: 2012Q1

REPORT INFORMATION
  Report Type: 
  Country: None (occurrence: None)
  Receive Date: 20120128
  Receipt Date: 20110718
  Transmission Date: 20120608
  Serious: No
  Sender: FDA-Public Use
  Company Number: US-ABBOTT-11P-163-0839961-00

PATIENT
  Age: 53 Year
  Sex: Female

DRUGS (5)
  1. PEPCID [Concomitant]
     Indication: PROPHYLAXIS AGAINST GASTROINTESTINAL ULCER
     Dosage: DAILY
  2. PREDNISONE TAB [Concomitant]
     Indication: CROHN'S DISEASE
     Dosage: DAILY
  3. HUMIRA [Suspect]
     Indication: CROHN'S DISEASE
     Dosage: INTERRUPTED
     Dates: start: 20100901, end: 20110712
  4. EVISTA [Concomitant]
     Indication: OSTEOPOROSIS PROPHYLAXIS
     Dosage: DAILY
  5. ASACOL [Concomitant]
     Indication: CROHN'S DISEASE
     Dosage: DAILY

REACTIONS (6)
  - RASH [None]
  - HEAVY EXPOSURE TO ULTRAVIOLET LIGHT [None]
  - DRUG DOSE OMISSION [None]
  - RASH PRURITIC [None]
  - CROHN'S DISEASE [None]
  - DERMATITIS CONTACT [None]
